FAERS Safety Report 8114260-7 (Version None)
Quarter: 2012Q1

REPORT INFORMATION
  Report Type: 
  Country: None (occurrence: None)
  Receive Date: 20120206
  Receipt Date: 20120126
  Transmission Date: 20120608
  Serious: Yes (Hospitalization)
  Sender: FDA-Public Use
  Company Number: US-BIOGENIDEC-2011BI044737

PATIENT
  Age: 32 Year
  Sex: Female

DRUGS (2)
  1. TYSABRI [Suspect]
     Indication: MULTIPLE SCLEROSIS
     Route: 042
     Dates: start: 20100308, end: 20100503
  2. TYSABRI [Suspect]
     Route: 042
     Dates: start: 20110906

REACTIONS (4)
  - MULTIPLE SCLEROSIS [None]
  - MOBILITY DECREASED [None]
  - ASTHENIA [None]
  - ABASIA [None]
